FAERS Safety Report 24532066 (Version 1)
Quarter: 2024Q4

REPORT INFORMATION
  Report Type: Spontaneous
  Country: US (occurrence: US)
  Receive Date: 20241022
  Receipt Date: 20241022
  Transmission Date: 20250114
  Serious: No
  Sender: ETON PHARMACEUTICALS, INC
  Company Number: US-ETON PHARMACEUTICALS, INC-2023ETO000236

PATIENT

DRUGS (14)
  1. ALKINDI SPRINKLE [Suspect]
     Active Substance: HYDROCORTISONE
     Indication: Hypopituitarism
     Dosage: 2 MILLIGRAM, TID
     Route: 048
     Dates: start: 2022
  2. ALKINDI SPRINKLE [Suspect]
     Active Substance: HYDROCORTISONE
     Dosage: 4 MILLIGRAM, TID
     Route: 048
     Dates: start: 2022
  3. GENOTROPIN [Concomitant]
     Active Substance: SOMATROPIN
     Indication: Product used for unknown indication
     Dosage: 2.8 MILLIGRAM, QD
     Route: 065
  4. SYNTHROID [Concomitant]
     Active Substance: LEVOTHYROXINE SODIUM
     Indication: Product used for unknown indication
     Dosage: 150 MICROGRAM, QD
     Route: 048
     Dates: start: 20230424, end: 20230830
  5. SYNTHROID [Concomitant]
     Active Substance: LEVOTHYROXINE SODIUM
     Dosage: 88 MICROGRAM, QD
     Route: 048
  6. SOLU-CORTEF [Concomitant]
     Active Substance: HYDROCORTISONE SODIUM SUCCINATE
     Indication: Hypopituitarism
     Dosage: 2.5/1.25/1.25 DAILY
     Route: 065
  7. TESTOSTERONE [Concomitant]
     Active Substance: TESTOSTERONE
     Indication: Growth hormone deficiency
     Dosage: 100 MILLIGRAM, QMONTH INJECTION IN HIS THIGHS
     Route: 030
  8. ADDERALL [Concomitant]
     Active Substance: AMPHETAMINE ASPARTATE\AMPHETAMINE SULFATE\DEXTROAMPHETAMINE SACCHARATE\DEXTROAMPHETAMINE SULFATE
     Indication: Attention deficit hyperactivity disorder
     Dosage: 35 MILLIGRAM, QD
     Route: 065
  9. ALBUTEROL SULFATE [Concomitant]
     Active Substance: ALBUTEROL SULFATE
     Indication: Asthma
     Dosage: UNK, PRN
     Route: 065
  10. CLONIDINE [Concomitant]
     Active Substance: CLONIDINE
     Indication: Product used for unknown indication
     Dosage: 0.1 MILLIGRAM, QD (AT BEDTIME)
     Route: 048
     Dates: end: 20231010
  11. CLONIDINE [Concomitant]
     Active Substance: CLONIDINE
     Dosage: 0.2 MILLIGRAM, QD (AT BEDTIME)
     Route: 048
  12. DDAVP/DESMOPRESSIN [Concomitant]
     Indication: Product used for unknown indication
     Dosage: 0.2 MILLIGRAM IN MORNING AND 0.4 MG IN EVENING
     Route: 065
     Dates: start: 20220103, end: 20231010
  13. OXYBUTYNIN [Concomitant]
     Active Substance: OXYBUTYNIN
     Indication: Product used for unknown indication
     Dosage: 5 MILLIGRAM, QD
     Route: 065
  14. EUCRISA [Concomitant]
     Active Substance: CRISABOROLE
     Indication: Eczema
     Dosage: UNK
     Route: 065

REACTIONS (5)
  - Fall [Unknown]
  - Testicular pain [Unknown]
  - Orchitis [Unknown]
  - Illness [Unknown]
  - Visual acuity reduced [Unknown]

NARRATIVE: CASE EVENT DATE: 20230101
